FAERS Safety Report 15393048 (Version 3)
Quarter: 2018Q4

REPORT INFORMATION
  Report Type: Spontaneous
  Country: BR (occurrence: BR)
  Receive Date: 20180917
  Receipt Date: 20181001
  Transmission Date: 20190204
  Serious: Yes (Hospitalization, Other)
  Sender: FDA-Public Use
  Company Number: BR-PFIZER INC-2018368275

PATIENT
  Age: 67 Year
  Sex: Female

DRUGS (4)
  1. LORAX [Suspect]
     Active Substance: LORAZEPAM
     Indication: DEPRESSION
  2. METFORMIN [Concomitant]
     Active Substance: METFORMIN HYDROCHLORIDE
     Dosage: 500 MG, 2X/DAY
  3. LORAX [Suspect]
     Active Substance: LORAZEPAM
     Indication: ANXIETY
     Dosage: 2 TABLETS OF 2MG, AT NIGHT
     Dates: start: 1987
  4. VENALOT [COUMARIN;TROXERUTIN] [Concomitant]
     Dosage: UNK

REACTIONS (4)
  - Carpal tunnel syndrome [Recovered/Resolved]
  - Cerebrovascular accident [Recovered/Resolved]
  - Memory impairment [Not Recovered/Not Resolved]
  - Drug effect decreased [Not Recovered/Not Resolved]

NARRATIVE: CASE EVENT DATE: 20171026
